FAERS Safety Report 4287070-9 (Version None)
Quarter: 2004Q1

REPORT INFORMATION
  Report Type: 
  Country: None (occurrence: None)
  Receive Date: 20040120
  Receipt Date: 20031125
  Transmission Date: 20041129
  Serious: Yes (Hospitalization)
  Sender: FDA-Public Use
  Company Number: 2003UW15527

PATIENT
  Age: 72 Year
  Sex: Female
  Weight: 60.782 kg

DRUGS (2)
  1. PRILOSEC [Suspect]
     Indication: DYSPEPSIA
     Dates: start: 20031103, end: 20031123
  2. PREDNISONE [Concomitant]

REACTIONS (1)
  - DIZZINESS [None]
